FAERS Safety Report 4472584-9 (Version None)
Quarter: 2004Q4

REPORT INFORMATION
  Report Type: 
  Country: None (occurrence: None)
  Receive Date: 20041008
  Receipt Date: 20040923
  Transmission Date: 20050328
  Serious: Yes (Death, Life-Threatening)
  Sender: FDA-Public Use
  Company Number: D01200401745

PATIENT
  Age: 87 Year
  Sex: Female

DRUGS (23)
  1. (OXALIPLATIN) - SOLUTION - 85 MG/M2 [Suspect]
     Indication: CHEMOTHERAPY NEUROTOXICITY ATTENUATION
     Dosage: 85 MG/M2 Q2W, INTRAVENOUS NOS - TIME TO ONSET : 2 WEEKS 3 DAYS
     Route: 042
     Dates: start: 20040406, end: 20040406
  2. (OXALIPLATIN) - SOLUTION - 85 MG/M2 [Suspect]
     Indication: COLORECTAL CANCER METASTATIC
     Dosage: 85 MG/M2 Q2W, INTRAVENOUS NOS - TIME TO ONSET : 2 WEEKS 3 DAYS
     Route: 042
     Dates: start: 20040406, end: 20040406
  3. FLUOROURACIL [Suspect]
     Dosage: 400 MG/M2 AS IV BOLUS THEN 600 MG/M2 AS 22 HOURS CONTINUOUS INFUSION D1-D2 Q2W, INTRAVENOUS NOS
     Route: 042
     Dates: start: 20040406, end: 20040407
  4. (SR57746 OR PLACEBO) - CAPSULE - 1 MG [Suspect]
     Dosage: 1 MG QD ORAL - TIME TO ONSET : 6 WEEKS 3 DAYS
     Route: 048
     Dates: start: 20040309, end: 20040427
  5. LEUCOVORIN CALCIUM [Suspect]
     Dosage: 200 MG/M2 AS 2 HOURS INFUSION ON D1-D2 Q2W, INTRAVENOUS NOS - TIME TO ONSET : 2 WEEKS 3 DAYS
     Route: 042
     Dates: start: 20040406, end: 20040407
  6. PRITOR (TELMISARTAN) [Concomitant]
  7. SECTRAL [Concomitant]
  8. SPIRONOLACTONE [Concomitant]
  9. NITRIDERM (GLYCERYL TRINITRATE) [Concomitant]
  10. OMEPRAZOLE [Concomitant]
  11. ASPIRIN [Concomitant]
  12. LACTULOSE [Concomitant]
  13. IMOVANE (ZOPICLONE) [Concomitant]
  14. FERROUS SULFATE TAB [Concomitant]
  15. ARANESP [Concomitant]
  16. FURANDOTOINE (NITROFURANTOIN) [Concomitant]
  17. SOLU-MEDROL [Concomitant]
  18. PRIMPERAN TAB [Concomitant]
  19. ONDANSETRON HYDROCHLORIDE [Concomitant]
  20. GRANOCYTE (LENOGRASTIM) [Concomitant]
  21. FORLAX (MACROGOL) [Concomitant]
  22. NOROXIN [Concomitant]
  23. MALTOFER (FERRIC HYDROXIDE POLYMALTOSE COMPLEX) [Concomitant]

REACTIONS (6)
  - BLOOD ALKALINE PHOSPHATASE INCREASED [None]
  - C-REACTIVE PROTEIN INCREASED [None]
  - FEBRILE NEUTROPENIA [None]
  - GENERAL PHYSICAL HEALTH DETERIORATION [None]
  - LUNG INFECTION [None]
  - PLATELET COUNT DECREASED [None]
